FAERS Safety Report 4738570-6 (Version None)
Quarter: 2005Q3

REPORT INFORMATION
  Report Type: 
  Country: None (occurrence: None)
  Receive Date: 20050808
  Receipt Date: 20050808
  Transmission Date: 20060218
  Serious: Yes (Hospitalization, Other)
  Sender: FDA-Public Use
  Company Number: None

PATIENT
  Sex: Female
  Weight: 52 kg

DRUGS (3)
  1. FLUOROURACIL [Suspect]
     Indication: ANAL CANCER
     Dosage: SEE IMAGE
     Dates: start: 20050627, end: 20050701
  2. CISPLATIN [Suspect]
     Dosage: SEE IMAGE
     Dates: start: 20050627, end: 20050627
  3. RADIATION [Suspect]
     Dosage: SEE IMAGE
     Dates: start: 20050627

REACTIONS (9)
  - ASTHENIA [None]
  - FEBRILE NEUTROPENIA [None]
  - GASTROINTESTINAL DISORDER [None]
  - GENITAL INFECTION FEMALE [None]
  - HYPERGLYCAEMIA [None]
  - NAUSEA [None]
  - RENAL FAILURE ACUTE [None]
  - VOMITING [None]
  - WOUND INFECTION [None]
